FAERS Safety Report 10287041 (Version 1)
Quarter: 2014Q3

REPORT INFORMATION
  Report Type: Spontaneous
  Country: CH (occurrence: None)
  Receive Date: 20140707
  Receipt Date: 20140707
  Transmission Date: 20150326
  Serious: Yes (Other)
  Sender: FDA-Public Use
  Company Number: IPC201406-000328

PATIENT
  Age: 79 Year
  Sex: Female

DRUGS (2)
  1. ALLOPURINOL (ALLOPURINOL) (ALLOPURINOL) [Suspect]
     Active Substance: ALLOPURINOL
  2. AZATHIOPRINE (AZATHIOPRINE) (AZATHIOPRINE) [Suspect]
     Active Substance: AZATHIOPRINE

REACTIONS (5)
  - Accidental overdose [None]
  - Sepsis [None]
  - Agranulocytosis [None]
  - Drug administration error [None]
  - Drug prescribing error [None]
